FAERS Safety Report 23579767 (Version 1)
Quarter: 2024Q1

REPORT INFORMATION
  Report Type: Report from Study
  Country: GB (occurrence: GB)
  Receive Date: 20240229
  Receipt Date: 20240229
  Transmission Date: 20240410
  Serious: Yes (Death, Other)
  Sender: FDA-Public Use
  Company Number: GB-IPSEN Group, Research and Development-2022-29194

PATIENT
  Age: 86 Year
  Sex: Female

DRUGS (2)
  1. LANREOTIDE ACETATE [Suspect]
     Active Substance: LANREOTIDE ACETATE
     Indication: Neuroendocrine tumour
  2. LANREOTIDE ACETATE [Suspect]
     Active Substance: LANREOTIDE ACETATE
     Dosage: 120MG/0.5ML
     Route: 058

REACTIONS (6)
  - Death [Fatal]
  - Lower respiratory tract infection [Unknown]
  - Melanocytic naevus [Unknown]
  - Dizziness [Unknown]
  - Erythema [Not Recovered/Not Resolved]
  - Mass [Not Recovered/Not Resolved]

NARRATIVE: CASE EVENT DATE: 20230301
